FAERS Safety Report 25372869 (Version 3)
Quarter: 2025Q4

REPORT INFORMATION
  Report Type: Spontaneous
  Country: EU (occurrence: EU)
  Receive Date: 20250529
  Receipt Date: 20251210
  Transmission Date: 20260118
  Serious: Yes (Other)
  Sender: AUROBINDO
  Company Number: EU-LABVITORIA-2025-00131

PATIENT
  Age: 52 Year
  Sex: Male

DRUGS (7)
  1. DEFLAZACORT [Suspect]
     Active Substance: DEFLAZACORT
     Indication: Angioedema
     Dosage: 30 MILLIGRAM (30 MG EVERY 2 DAYS)
     Route: 065
  2. BILASTINE [Suspect]
     Active Substance: BILASTINE
     Indication: Angioedema
     Dosage: 4 DOSAGE FORM, ONCE A DAY
     Route: 065
  3. BILASTINE [Suspect]
     Active Substance: BILASTINE
     Dosage: 2 DOSAGE FORM, ONCE A DAY
     Route: 065
  4. BILASTINE [Suspect]
     Active Substance: BILASTINE
     Dosage: UNK(ALTERNATE-DAY DOSING)
     Route: 065
  5. BILASTINE [Suspect]
     Active Substance: BILASTINE
     Dosage: UNK(UNKNOWN DOSAGE)
     Route: 065
  6. BILASTINE [Concomitant]
     Active Substance: BILASTINE
     Indication: Angioedema
     Dosage: 30 MILLIGRAM, EVERY OTHER DAY
     Route: 065
  7. MIRTAZAPINE [Concomitant]
     Active Substance: MIRTAZAPINE
     Indication: Angioedema
     Dosage: 15 MILLIGRAM, ONCE A DAY
     Route: 065

REACTIONS (2)
  - Osteoporosis [Unknown]
  - Off label use [Not Recovered/Not Resolved]
